FAERS Safety Report 9288677 (Version 3)
Quarter: 2015Q1

REPORT INFORMATION
  Report Type: Spontaneous
  Country: US (occurrence: US)
  Receive Date: 20130514
  Receipt Date: 20150304
  Transmission Date: 20150721
  Serious: Yes (Disabling)
  Sender: FDA-Public Use
  Company Number: US-009507513-1305USA003508

PATIENT
  Sex: Male

DRUGS (3)
  1. PROPECIA [Suspect]
     Active Substance: FINASTERIDE
     Indication: ANDROGENETIC ALOPECIA
     Dosage: 1 MG, UNK
     Route: 048
     Dates: start: 1998, end: 2007
  2. PROPECIA [Suspect]
     Active Substance: FINASTERIDE
     Indication: ALOPECIA
  3. FINASTERIDE. [Suspect]
     Active Substance: FINASTERIDE
     Dosage: 1 MG, UNK
     Route: 048
     Dates: start: 1998, end: 2007

REACTIONS (18)
  - Hyperlipidaemia [Unknown]
  - Rhinorrhoea [Unknown]
  - Acne [Unknown]
  - Benign prostatic hyperplasia [Unknown]
  - Depression [Unknown]
  - Pain [Unknown]
  - Cognitive disorder [Not Recovered/Not Resolved]
  - Sexually transmitted disease [Unknown]
  - Musculoskeletal pain [Unknown]
  - Loss of libido [Unknown]
  - Epicondylitis [Unknown]
  - Erectile dysfunction [Not Recovered/Not Resolved]
  - Flushing [Unknown]
  - Sexual dysfunction [Not Recovered/Not Resolved]
  - Anxiety [Unknown]
  - Diarrhoea [Not Recovered/Not Resolved]
  - Headache [Unknown]
  - Blood testosterone decreased [Unknown]

NARRATIVE: CASE EVENT DATE: 200205
